FAERS Safety Report 9527911 (Version 2)
Quarter: 2013Q4

REPORT INFORMATION
  Report Type: Spontaneous
  Country: US (occurrence: US)
  Receive Date: 20130917
  Receipt Date: 20131220
  Transmission Date: 20140711
  Serious: Yes (Other)
  Sender: FDA-Public Use
  Company Number: US-PFIZER INC-2013262892

PATIENT
  Age: 60 Year
  Sex: Male

DRUGS (14)
  1. SUTENT [Suspect]
     Indication: RENAL CANCER
     Dosage: 37.5 MG, CYCLIC (4 WEEKS ON FOLLOWED BY 2 WEEKS OFF)
     Route: 048
     Dates: start: 20130628
  2. SUTENT [Suspect]
     Dosage: 25 MG, CYCLIC (QD X 4 WKS OFF X 2 WKS)
     Route: 048
     Dates: start: 20130826
  3. SUTENT [Suspect]
     Dosage: 12.5 MG, 1X/DAY (QD)
     Route: 048
     Dates: start: 20130828
  4. VENLAFAXINE [Concomitant]
     Dosage: UNK
  5. ERYTHROMYCIN [Concomitant]
     Indication: CHLAMYDIAL INFECTION
     Dosage: UNK
  6. MORPHINE [Concomitant]
     Dosage: 30 MG, UNK
  7. PSEUDOEPHEDRINE [Concomitant]
     Dosage: UNK
  8. SENNA [Concomitant]
     Dosage: UNK
  9. COLACE [Concomitant]
     Dosage: UNK
  10. DIPHENHYDRAMINE [Concomitant]
     Dosage: UNK
  11. ZOFRAN [Concomitant]
     Dosage: UNK
     Dates: start: 20130909
  12. HYDROCODONE [Concomitant]
     Dosage: UNK
  13. SUDAFED [Concomitant]
     Dosage: UNK
  14. BENADRYL [Concomitant]
     Dosage: UNK

REACTIONS (7)
  - Nausea [Unknown]
  - Decreased appetite [Unknown]
  - Pyrexia [Unknown]
  - Chills [Unknown]
  - Fatigue [Unknown]
  - Palmar-plantar erythrodysaesthesia syndrome [Unknown]
  - Blister [Unknown]
